FAERS Safety Report 6169809-0 (Version None)
Quarter: 2009Q2

REPORT INFORMATION
  Report Type: 
  Country: None (occurrence: None)
  Receive Date: 20090428
  Receipt Date: 20081202
  Transmission Date: 20091009
  Serious: No
  Sender: FDA-Public Use
  Company Number: US-AMGEN-KDL321708

PATIENT
  Sex: Male

DRUGS (12)
  1. EPOGEN [Suspect]
     Indication: DIALYSIS
     Dates: start: 20010319
  2. SENSIPAR [Suspect]
     Indication: HYPERPARATHYROIDISM SECONDARY
     Dates: start: 20071129
  3. VITAMIN B COMPLEX CAP [Concomitant]
  4. TESSALON [Concomitant]
  5. PROCARDIA XL [Concomitant]
  6. MINOXIDIL [Concomitant]
  7. ASCORBIC ACID [Concomitant]
  8. DIOVAN [Concomitant]
  9. PHOSLO [Concomitant]
  10. LACTULOSE [Concomitant]
  11. CENTRUM [Concomitant]
  12. LIPITOR [Concomitant]

REACTIONS (3)
  - HAEMOGLOBIN DECREASED [None]
  - POLYPECTOMY [None]
  - RETICULOCYTE COUNT INCREASED [None]
